FAERS Safety Report 5535471-0 (Version None)
Quarter: 2007Q4

REPORT INFORMATION
  Report Type: 
  Country: None (occurrence: None)
  Receive Date: 20071204
  Receipt Date: 20071204
  Transmission Date: 20080405
  Serious: Yes (Other)
  Sender: FDA-Public Use
  Company Number: None

PATIENT
  Sex: Male
  Weight: 104.3273 kg

DRUGS (1)
  1. TRICOR [Suspect]
     Indication: BLOOD CHOLESTEROL INCREASED
     Dosage: ONE PILL  PER DAY

REACTIONS (8)
  - ANGER [None]
  - ARTHRALGIA [None]
  - GAIT DISTURBANCE [None]
  - HEADACHE [None]
  - INSOMNIA [None]
  - MEMORY IMPAIRMENT [None]
  - NEUROPATHY PERIPHERAL [None]
  - SEXUAL DYSFUNCTION [None]
